FAERS Safety Report 8364746-5 (Version None)
Quarter: 2012Q2

REPORT INFORMATION
  Report Type: 
  Country: None (occurrence: None)
  Receive Date: 20120516
  Receipt Date: 20120511
  Transmission Date: 20120825
  Serious: Yes (Congenital Anomaly, Other)
  Sender: FDA-Public Use
  Company Number: DE-NAPPMUNDI-DEU-2012-0008935

PATIENT
  Sex: Male
  Weight: 2.34 kg

DRUGS (10)
  1. MEPERIDINE HCL [Suspect]
     Indication: MATERNAL EXPOSURE DURING PREGNANCY
     Dosage: UNK, SEE TEXT
     Route: 064
     Dates: start: 20091013, end: 20100613
  2. VALDOXAN [Suspect]
     Indication: MATERNAL EXPOSURE DURING PREGNANCY
     Dosage: 25 MG, DAILY
     Route: 064
     Dates: end: 20100218
  3. MORPHINE [Suspect]
     Indication: MATERNAL EXPOSURE DURING PREGNANCY
     Dosage: 300 MG, DAILY
     Route: 064
     Dates: end: 20100613
  4. HYDROXYUREA [Suspect]
     Indication: MATERNAL EXPOSURE DURING PREGNANCY
     Dosage: 1000 MG, DAILY
     Route: 064
     Dates: start: 20091013, end: 20100218
  5. MELPERON [Suspect]
     Indication: MATERNAL EXPOSURE DURING PREGNANCY
     Dosage: 1 TABLET, TID
     Route: 064
     Dates: end: 20100218
  6. ANTACIDA FNA                       /01021901/ [Concomitant]
     Indication: MATERNAL EXPOSURE DURING PREGNANCY
     Dosage: UNK
     Route: 064
  7. MORPHINE [Suspect]
     Dosage: 40 MG, DAILY
     Route: 064
     Dates: start: 20091013
  8. FOLIC ACID [Concomitant]
     Indication: MATERNAL EXPOSURE DURING PREGNANCY
     Dosage: UNK
     Route: 064
  9. OMEP                               /00661201/ [Concomitant]
     Indication: MATERNAL EXPOSURE DURING PREGNANCY
     Dosage: 20 MG, DAILY
     Route: 064
  10. HALDOL [Concomitant]
     Indication: MATERNAL EXPOSURE DURING PREGNANCY
     Dosage: 5 DROP, BID
     Route: 064
     Dates: end: 20100218

REACTIONS (2)
  - DRUG WITHDRAWAL SYNDROME NEONATAL [None]
  - OESOPHAGEAL ATRESIA [None]
